FAERS Safety Report 20424463 (Version 1)
Quarter: 2022Q1

REPORT INFORMATION
  Report Type: Report from Study
  Country: US (occurrence: US)
  Receive Date: 20220203
  Receipt Date: 20220203
  Transmission Date: 20220423
  Serious: Yes (Hospitalization)
  Sender: FDA-Public Use
  Company Number: US-EXELIXIS-CABO-21045034

PATIENT
  Age: 73 Year
  Sex: Male

DRUGS (3)
  1. CABOMETYX [Suspect]
     Active Substance: CABOZANTINIB S-MALATE
     Indication: Renal cell carcinoma
     Dosage: 40 MG, QD
     Route: 048
  2. CABOMETYX [Suspect]
     Active Substance: CABOZANTINIB S-MALATE
     Dosage: 40 MG, QD
     Route: 048
     Dates: start: 20211009, end: 20211111
  3. CABOMETYX [Suspect]
     Active Substance: CABOZANTINIB S-MALATE
     Dosage: 40 MG
     Route: 048

REACTIONS (13)
  - Seizure [Unknown]
  - Visual impairment [Not Recovered/Not Resolved]
  - Pancreatolithiasis [Not Recovered/Not Resolved]
  - Dry mouth [Not Recovered/Not Resolved]
  - Dehydration [Recovering/Resolving]
  - Decreased appetite [Recovered/Resolved]
  - Blood pressure increased [Not Recovered/Not Resolved]
  - Diarrhoea [Not Recovered/Not Resolved]
  - Weight decreased [Recovered/Resolved]
  - Mouth haemorrhage [Unknown]
  - Spinal cord neoplasm [Unknown]
  - Pancreatic neoplasm [Not Recovered/Not Resolved]
  - Metastases to central nervous system [Unknown]

NARRATIVE: CASE EVENT DATE: 20211101
